FAERS Safety Report 24906331 (Version 2)
Quarter: 2025Q1

REPORT INFORMATION
  Report Type: Spontaneous
  Country: PT (occurrence: PT)
  Receive Date: 20250130
  Receipt Date: 20250130
  Transmission Date: 20250408
  Serious: Yes (Other)
  Sender: MYLAN
  Company Number: PT-MEDAC-2024-AER-04828

PATIENT
  Age: 4 Year
  Sex: Male

DRUGS (2)
  1. METHOTREXATE [Suspect]
     Active Substance: METHOTREXATE
     Indication: Polyarthritis
     Route: 065
  2. METHOTREXATE [Suspect]
     Active Substance: METHOTREXATE
     Indication: Haploinsufficiency of A20

REACTIONS (3)
  - Hepatotoxicity [Unknown]
  - Drug effective for unapproved indication [Unknown]
  - Off label use [Unknown]
